FAERS Safety Report 11369527 (Version 1)
Quarter: 2015Q3

REPORT INFORMATION
  Report Type: Spontaneous
  Country: US (occurrence: US)
  Receive Date: 20150812
  Receipt Date: 20150812
  Transmission Date: 20151125
  Serious: No
  Sender: FDA-Public Use
  Company Number: US-JNJFOC-20150513419

PATIENT
  Age: 56 Year
  Sex: Female
  Weight: 44.45 kg

DRUGS (3)
  1. EFFEXOR [Concomitant]
     Active Substance: VENLAFAXINE HYDROCHLORIDE
     Indication: MIGRAINE
     Route: 065
  2. TOPIRAMATE. [Suspect]
     Active Substance: TOPIRAMATE
     Indication: MIGRAINE
     Route: 048
     Dates: start: 20150517
  3. EFFEXOR [Concomitant]
     Active Substance: VENLAFAXINE HYDROCHLORIDE
     Indication: DEPRESSION
     Route: 065

REACTIONS (9)
  - Nausea [Unknown]
  - Restless legs syndrome [Not Recovered/Not Resolved]
  - Dysgeusia [Not Recovered/Not Resolved]
  - Anxiety [Not Recovered/Not Resolved]
  - Poor quality drug administered [Not Recovered/Not Resolved]
  - Sleep disorder [Unknown]
  - Dizziness [Unknown]
  - Migraine [Not Recovered/Not Resolved]
  - Feeling abnormal [Unknown]

NARRATIVE: CASE EVENT DATE: 20150517
